FAERS Safety Report 18786947 (Version 1)
Quarter: 2021Q1

REPORT INFORMATION
  Report Type: Spontaneous
  Country: US (occurrence: US)
  Receive Date: 20210126
  Receipt Date: 20210126
  Transmission Date: 20210419
  Serious: Yes (Other)
  Sender: FDA-Public Use
  Company Number: None

PATIENT
  Age: 63 Year
  Sex: Male
  Weight: 101.2 kg

DRUGS (14)
  1. METOPROLOL TARTRATE 25 MG TABLET [Concomitant]
  2. AMLODIPINE 10 MG [Concomitant]
     Active Substance: AMLODIPINE BESYLATE
  3. METFORMIN [Concomitant]
     Active Substance: METFORMIN HYDROCHLORIDE
  4. PAROXETINE 20 MG TABLET [Concomitant]
  5. LISINOPRIL 20 MG [Concomitant]
     Active Substance: LISINOPRIL
  6. ATORVASTATIN 80 MG [Concomitant]
     Active Substance: ATORVASTATIN
  7. ALLOPURINOL 300 MG [Concomitant]
     Active Substance: ALLOPURINOL
  8. BAMLANIVIMAB. [Suspect]
     Active Substance: BAMLANIVIMAB
     Indication: COVID-19
     Route: 042
     Dates: start: 20210118, end: 20210118
  9. ISOSORBIDE MONONITRATE 30 MG [Concomitant]
  10. FLONASE NASAL 50 MCG/ML [Concomitant]
  11. CLOPIDOGREL 75 MG TABLET [Concomitant]
  12. ASA 81 MG CHEWABLE [Concomitant]
  13. NITROGLYCERIN 0.4 MG SUBLINGUAL TABLET [Concomitant]
  14. COLCHICINE 0.6 MG TABLET [Concomitant]

REACTIONS (5)
  - Cough [None]
  - Chest pain [None]
  - Dizziness [None]
  - Malaise [None]
  - Decreased appetite [None]

NARRATIVE: CASE EVENT DATE: 20210125
